FAERS Safety Report 9302225 (Version 5)
Quarter: 2013Q3

REPORT INFORMATION
  Report Type: Spontaneous
  Country: JP (occurrence: JP)
  Receive Date: 20130522
  Receipt Date: 20130716
  Transmission Date: 20140515
  Serious: Yes (Hospitalization)
  Sender: FDA-Public Use
  Company Number: JP-B.I. PHARMACEUTICALS,INC./RIDGEFIELD-2013-BI-13463NB

PATIENT
  Age: 81 Year
  Sex: Female

DRUGS (8)
  1. PRAZAXA [Suspect]
     Indication: ATRIAL FIBRILLATION
     Dosage: 220 MG
     Route: 048
     Dates: end: 20130513
  2. MEDET [Concomitant]
     Dosage: 750 MG
     Route: 048
  3. SIGMART [Concomitant]
     Dosage: 15 MG
     Route: 048
  4. RYTHMODAN [Concomitant]
     Dosage: 150 MG
     Route: 048
  5. ARTIST [Concomitant]
     Dosage: 2.5 MG
     Route: 048
  6. ACECOL [Concomitant]
     Dosage: 2 MG
     Route: 048
  7. MICAMLO [Concomitant]
     Dosage: 2 MG
     Route: 048
  8. ZYLORIC [Concomitant]
     Dosage: 200 MG
     Route: 048

REACTIONS (2)
  - Aspartate aminotransferase increased [Not Recovered/Not Resolved]
  - Alanine aminotransferase increased [Not Recovered/Not Resolved]
